FAERS Safety Report 7483866-0 (Version None)
Quarter: 2011Q2

REPORT INFORMATION
  Report Type: 
  Country: None (occurrence: None)
  Receive Date: 20110517
  Receipt Date: 20110429
  Transmission Date: 20111010
  Serious: No
  Sender: FDA-Public Use
  Company Number: US-B.I. PHARMACEUTICALS,INC./RIDGEFIELD-2011-BP-08691BP

PATIENT
  Age: 64 Year
  Sex: Male

DRUGS (9)
  1. CRESTOR [Concomitant]
     Dates: start: 20101208
  2. DIGOXIN [Suspect]
     Indication: ATRIAL FIBRILLATION
     Dates: start: 20101208
  3. JANUVIA [Concomitant]
     Indication: DIABETES MELLITUS
  4. PRADAXA [Suspect]
     Indication: ATRIAL FIBRILLATION
     Dosage: 300 MG
     Route: 048
     Dates: start: 20101208
  5. METFORMIN HCL [Concomitant]
     Indication: DIABETES MELLITUS
  6. COSTAR [Concomitant]
     Indication: BLOOD CHOLESTEROL INCREASED
  7. GLYBURIDE [Concomitant]
     Indication: DIABETES MELLITUS
  8. METOPROLOL SUCCINATE [Concomitant]
     Indication: DIABETES MELLITUS
  9. RAMIPRIL [Concomitant]
     Dates: start: 20101208

REACTIONS (1)
  - BLOOD GLUCOSE INCREASED [None]
